FAERS Safety Report 7068889-8 (Version None)
Quarter: 2010Q4

REPORT INFORMATION
  Report Type: 
  Country: None (occurrence: None)
  Receive Date: 20101028
  Receipt Date: 20101020
  Transmission Date: 20110411
  Serious: Yes (Other)
  Sender: FDA-Public Use
  Company Number: DE-BAXTER-2010BH026354

PATIENT
  Sex: Female

DRUGS (2)
  1. GAMMAGARD LIQUID [Suspect]
     Indication: PRODUCT USED FOR UNKNOWN INDICATION
     Route: 042
     Dates: start: 20101015, end: 20101015
  2. GAMMAGARD LIQUID [Suspect]
     Route: 042
     Dates: start: 20101015, end: 20101015

REACTIONS (1)
  - ANAPHYLACTIC REACTION [None]
